FAERS Safety Report 13462107 (Version 1)
Quarter: 2017Q2

REPORT INFORMATION
  Report Type: Spontaneous
  Country: US (occurrence: US)
  Receive Date: 20170420
  Receipt Date: 20170420
  Transmission Date: 20170830
  Serious: No
  Sender: FDA-Public Use
  Company Number: US-ASTRAZENECA-2017SE40304

PATIENT
  Sex: Male

DRUGS (11)
  1. LYRICA [Concomitant]
     Active Substance: PREGABALIN
  2. CRESTOR [Suspect]
     Active Substance: ROSUVASTATIN CALCIUM
     Route: 048
  3. CRESTOR [Suspect]
     Active Substance: ROSUVASTATIN CALCIUM
     Route: 048
  4. EFFIENT [Concomitant]
     Active Substance: PRASUGREL HYDROCHLORIDE
  5. LIVALO [Concomitant]
     Active Substance: PITAVASTATIN CALCIUM
  6. AMITRIPTYLINE [Concomitant]
     Active Substance: AMITRIPTYLINE
     Dosage: UNKNOWN
     Route: 065
  7. TESTOSTERONE. [Concomitant]
     Active Substance: TESTOSTERONE
  8. PROVIGIL [Concomitant]
     Active Substance: MODAFINIL
  9. NIASPAN [Concomitant]
     Active Substance: NIACIN
  10. NEURONTIN [Concomitant]
     Active Substance: GABAPENTIN
  11. NITROGLYCERIN. [Concomitant]
     Active Substance: NITROGLYCERIN

REACTIONS (1)
  - Drug intolerance [Unknown]
